FAERS Safety Report 11857054 (Version 2)
Quarter: 2016Q1

REPORT INFORMATION
  Report Type: Spontaneous
  Country: IT (occurrence: IT)
  Receive Date: 20151221
  Receipt Date: 20160219
  Transmission Date: 20160526
  Serious: Yes (Hospitalization)
  Sender: FDA-Public Use
  Company Number: IT-JNJFOC-20151209456

PATIENT
  Age: 53 Year
  Sex: Male

DRUGS (2)
  1. HALDOL DECANOATE [Suspect]
     Active Substance: HALOPERIDOL DECANOATE
     Indication: SCHIZOPHRENIA
     Route: 030
     Dates: end: 20150307
  2. HALDOL DECANOATE [Suspect]
     Active Substance: HALOPERIDOL DECANOATE
     Indication: SCHIZOPHRENIA
     Route: 030
     Dates: end: 20150407

REACTIONS (4)
  - Condition aggravated [Unknown]
  - Extrapyramidal disorder [Unknown]
  - Withdrawal syndrome [Unknown]
  - Dysarthria [Unknown]

NARRATIVE: CASE EVENT DATE: 2015
